FAERS Safety Report 20509810 (Version 1)
Quarter: 2022Q1

REPORT INFORMATION
  Report Type: Spontaneous
  Country: US (occurrence: US)
  Receive Date: 20220224
  Receipt Date: 20220224
  Transmission Date: 20220424
  Serious: No
  Sender: FDA-Public Use
  Company Number: US-ORPHANEU-2020001897

PATIENT

DRUGS (1)
  1. CYSTADANE [Suspect]
     Active Substance: BETAINE
     Indication: Product used for unknown indication
     Dosage: UNK

REACTIONS (5)
  - Dupuytren^s contracture [Unknown]
  - Paraesthesia [Unknown]
  - Nodule [Unknown]
  - Pruritus [Unknown]
  - Pain in extremity [Unknown]
